FAERS Safety Report 5211006-7 (Version None)
Quarter: 2007Q1

REPORT INFORMATION
  Report Type: 
  Country: None (occurrence: None)
  Receive Date: 20070117
  Receipt Date: 20070105
  Transmission Date: 20070707
  Serious: Yes (Other)
  Sender: FDA-Public Use
  Company Number: FR-PFIZER INC-2007002381

PATIENT
  Age: 80 Year
  Sex: Male

DRUGS (3)
  1. LYRICA [Suspect]
     Indication: NEURALGIA
  2. VEINAMITOL [Concomitant]
  3. ZESTORETIC [Concomitant]

REACTIONS (2)
  - EXTRASYSTOLES [None]
  - VERTIGO [None]
